FAERS Safety Report 6524485-X (Version None)
Quarter: 2010Q1

REPORT INFORMATION
  Report Type: 
  Country: None (occurrence: None)
  Receive Date: 20100104
  Receipt Date: 20091222
  Transmission Date: 20100710
  Serious: Yes (Hospitalization)
  Sender: FDA-Public Use
  Company Number: US-TEVA-219054USA

PATIENT
  Age: 4 Year
  Sex: Male

DRUGS (12)
  1. DAUNORUBICIN HYDROCHLORIDE 20MG BASE/10ML, 50MG BASE/20ML [Suspect]
     Indication: ACUTE LYMPHOCYTIC LEUKAEMIA
     Route: 042
     Dates: start: 20090424, end: 20090501
  2. HYDROCORTISONE CREAM USP 1% [Suspect]
     Indication: ACUTE LYMPHOCYTIC LEUKAEMIA
     Route: 037
     Dates: start: 20090424, end: 20090508
  3. DASATINIB [Suspect]
     Indication: ACUTE LYMPHOCYTIC LEUKAEMIA
     Dosage: 60 MG./SQ. METER 1 DAY
     Route: 048
     Dates: start: 20090424, end: 20090507
  4. CYTARABINE [Suspect]
     Indication: ACUTE LYMPHOCYTIC LEUKAEMIA
     Route: 037
     Dates: start: 20090424, end: 20090508
  5. METHOTREXATE [Suspect]
     Indication: ACUTE LYMPHOCYTIC LEUKAEMIA
     Dosage: 12 MG 1 DAY
     Route: 048
     Dates: start: 20090424, end: 20090508
  6. PREDNISONE [Suspect]
     Indication: ACUTE LYMPHOCYTIC LEUKAEMIA
     Dosage: 436.8 MG
     Route: 042
     Dates: start: 20090424, end: 20090507
  7. VINCRISTINE [Suspect]
     Indication: ACUTE LYMPHOCYTIC LEUKAEMIA
     Dosage: 1.92 MG
     Route: 042
     Dates: start: 20090424, end: 20090501
  8. BACTRIM [Suspect]
  9. GRANISETRON HYDROCHLORIDE [Suspect]
  10. GABAPENTIN [Suspect]
  11. ONDANSETRON HYDROCHLORIDE [Suspect]
  12. PIPERACILLIN AND TAZOBACTAM [Suspect]

REACTIONS (4)
  - ALANINE AMINOTRANSFERASE INCREASED [None]
  - ASPARTATE AMINOTRANSFERASE INCREASED [None]
  - GAMMA-GLUTAMYLTRANSFERASE INCREASED [None]
  - LYMPHOPENIA [None]
